FAERS Safety Report 7693936-X (Version None)
Quarter: 2011Q3

REPORT INFORMATION
  Report Type: 
  Country: None (occurrence: None)
  Receive Date: 20110819
  Receipt Date: 20110812
  Transmission Date: 20111222
  Serious: Yes (Other)
  Sender: FDA-Public Use
  Company Number: CA-JNJFOC-20110807404

PATIENT
  Sex: Male

DRUGS (4)
  1. ADVIL LIQUI-GELS [Suspect]
     Indication: BACK DISORDER
     Route: 065
  2. TYLENOL-500 [Suspect]
     Indication: BACK DISORDER
     Route: 065
  3. ALL OTHER THERAPEUTIC PRODUCTS [Suspect]
     Indication: BACK DISORDER
     Route: 065
  4. TYLENOL-500 [Suspect]
     Route: 065

REACTIONS (1)
  - GASTRIC ULCER [None]
